FAERS Safety Report 12225938 (Version 1)
Quarter: 2016Q1

REPORT INFORMATION
  Report Type: Spontaneous
  Country: FR (occurrence: FR)
  Receive Date: 20160331
  Receipt Date: 20160331
  Transmission Date: 20160526
  Serious: Yes (Hospitalization, Other)
  Sender: FDA-Public Use
  Company Number: FR-PFIZER INC-2016178259

PATIENT
  Age: 77 Year
  Sex: Male

DRUGS (4)
  1. EFFEXOR [Suspect]
     Active Substance: VENLAFAXINE HYDROCHLORIDE
     Indication: DEPRESSION
     Dosage: UNK
     Route: 048
     Dates: start: 201509, end: 20150924
  2. LEVOTHYROX [Concomitant]
     Active Substance: LEVOTHYROXINE
     Dosage: UNK
  3. EFFEXOR [Suspect]
     Active Substance: VENLAFAXINE HYDROCHLORIDE
     Indication: ANXIETY DISORDER
  4. GUTRON [Concomitant]
     Active Substance: MIDODRINE
     Dosage: UNK

REACTIONS (7)
  - Visual acuity reduced [Unknown]
  - Confusional state [Recovered/Resolved]
  - Head injury [Unknown]
  - Hyponatraemia [Recovered/Resolved]
  - Asthenia [Unknown]
  - Loss of consciousness [Unknown]
  - Presyncope [Unknown]

NARRATIVE: CASE EVENT DATE: 201509
